FAERS Safety Report 4602319-8 (Version None)
Quarter: 2005Q2

REPORT INFORMATION
  Report Type: 
  Country: None (occurrence: None)
  Receive Date: 20050215
  Receipt Date: 20041110
  Transmission Date: 20051028
  Serious: Yes (Life-Threatening)
  Sender: FDA-Public Use
  Company Number: 373724

PATIENT
  Age: 52 Year
  Sex: Male
  Weight: 67.6 kg

DRUGS (5)
  1. PEGASYS [Suspect]
     Indication: HEPATITIS C
     Dosage: 180 MCG 1 PER WEEK SUBCUTANEOUS
     Route: 058
     Dates: start: 20030410, end: 20040701
  2. COPEGUS [Suspect]
     Indication: HEPATITIS C
     Dosage: ORAL
     Route: 048
     Dates: start: 20030410, end: 20040604
  3. PROGRAF [Concomitant]
  4. NEURONTIN [Concomitant]
  5. NEXIUM [Concomitant]

REACTIONS (4)
  - ANAEMIA [None]
  - DYSPNOEA [None]
  - LEUKOPENIA [None]
  - THROMBOCYTOPENIA [None]
